FAERS Safety Report 5831436-X (Version None)
Quarter: 2008Q3

REPORT INFORMATION
  Report Type: 
  Country: None (occurrence: None)
  Receive Date: 20080801
  Receipt Date: 20080721
  Transmission Date: 20090109
  Serious: Yes (Hospitalization, Other)
  Sender: FDA-Public Use
  Company Number: US-PFIZER INC-2008056809

PATIENT
  Sex: Female
  Weight: 63.5 kg

DRUGS (3)
  1. DILANTIN SUSPENSION [Suspect]
     Indication: CONVULSION
  2. PHENOBARBITAL TAB [Concomitant]
  3. KEPPRA [Concomitant]

REACTIONS (9)
  - AMNESIA [None]
  - BONE DISORDER [None]
  - BRAIN OPERATION [None]
  - CONVULSION [None]
  - GINGIVAL DISORDER [None]
  - TOOTH DISORDER [None]
  - TOOTH FRACTURE [None]
  - TOOTHACHE [None]
  - UNEVALUABLE EVENT [None]
